FAERS Safety Report 10455404 (Version 1)
Quarter: 2014Q3

REPORT INFORMATION
  Report Type: Spontaneous
  Country: US (occurrence: None)
  Receive Date: 20140915
  Receipt Date: 20140915
  Transmission Date: 20150326
  Serious: No
  Sender: FDA-Public Use
  Company Number: None

PATIENT
  Age: 41 Year
  Sex: Female
  Weight: 78.02 kg

DRUGS (1)
  1. DEXILANT [Suspect]
     Active Substance: DEXLANSOPRAZOLE
     Indication: GASTROOESOPHAGEAL REFLUX DISEASE
     Route: 048
     Dates: start: 20120117, end: 20120301

REACTIONS (5)
  - Flushing [None]
  - Discomfort [None]
  - Cheilitis [None]
  - Rash [None]
  - Lip swelling [None]

NARRATIVE: CASE EVENT DATE: 20130117
